FAERS Safety Report 19844525 (Version 1)
Quarter: 2021Q3

REPORT INFORMATION
  Report Type: Other
  Country: JP (occurrence: JP)
  Receive Date: 20210916
  Receipt Date: 20210916
  Transmission Date: 20211014
  Serious: Yes (Death)
  Sender: FDA-Public Use
  Company Number: JP-B.BRAUN MEDICAL INC.-2118452

PATIENT
  Age: 34 Year
  Sex: Female

DRUGS (1)
  1. HEPARIN SODIUM. [Suspect]
     Active Substance: HEPARIN SODIUM
     Indication: GESTATIONAL HYPERTENSION

REACTIONS (1)
  - Foetal death [Recovered/Resolved]
